FAERS Safety Report 11646769 (Version 1)
Quarter: 2015Q4

REPORT INFORMATION
  Report Type: Spontaneous
  Country: US (occurrence: US)
  Receive Date: 20151020
  Receipt Date: 20151020
  Transmission Date: 20160304
  Serious: No
  Sender: FDA-Public Use
  Company Number: US-ROCHE-ITM201506IM017340

PATIENT
  Sex: Female
  Weight: 65.83 kg

DRUGS (1)
  1. PIRFENIDONE [Suspect]
     Active Substance: PIRFENIDONE
     Indication: IDIOPATHIC PULMONARY FIBROSIS
     Dosage: TOTAL-2403MG DAILY 3 CAPS PO TID
     Route: 048
     Dates: start: 20150702

REACTIONS (1)
  - Diarrhoea [Not Recovered/Not Resolved]
